FAERS Safety Report 4719411-X (Version None)
Quarter: 2005Q3

REPORT INFORMATION
  Report Type: 
  Country: None (occurrence: None)
  Receive Date: 20050721
  Receipt Date: 20041129
  Transmission Date: 20060218
  Serious: No
  Sender: FDA-Public Use
  Company Number: US-BRISTOL-MYERS SQUIBB COMPANY-12775581

PATIENT
  Age: 47 Year
  Sex: Female
  Weight: 54 kg

DRUGS (4)
  1. ESTRACE [Suspect]
     Indication: MENOPAUSAL SYMPTOMS
     Route: 048
     Dates: start: 19990101
  2. ESTRACE [Suspect]
     Indication: OSTEOPENIA
     Route: 048
     Dates: start: 19990101
  3. FOSAMAX [Concomitant]
     Dates: start: 19980101
  4. PROMETRIUM [Concomitant]
     Dates: start: 19990101

REACTIONS (4)
  - FATIGUE [None]
  - OEDEMA PERIPHERAL [None]
  - SLUGGISHNESS [None]
  - SWELLING FACE [None]
